FAERS Safety Report 14226948 (Version 3)
Quarter: 2018Q1

REPORT INFORMATION
  Report Type: Spontaneous
  Country: PL (occurrence: PL)
  Receive Date: 20171127
  Receipt Date: 20180201
  Transmission Date: 20180508
  Serious: Yes (Other)
  Sender: FDA-Public Use
  Company Number: PL-JNJFOC-20171128695

PATIENT
  Age: 88 Year
  Sex: Male

DRUGS (10)
  1. CAVINTON [Concomitant]
     Active Substance: VINPOCETINE
     Indication: DIZZINESS
     Dosage: DOSAGE: UNKNOWN
     Route: 065
  2. XARELTO [Suspect]
     Active Substance: RIVAROXABAN
     Indication: PULMONARY EMBOLISM
     Route: 048
     Dates: start: 20171019
  3. LUCETAM [Concomitant]
     Indication: DEMENTIA
     Dosage: DOSAGE: UNKNOWN
     Route: 065
  4. XARELTO [Suspect]
     Active Substance: RIVAROXABAN
     Indication: PULMONARY EMBOLISM
     Route: 048
  5. CAVINTON [Concomitant]
     Active Substance: VINPOCETINE
     Indication: DEMENTIA
     Dosage: DOSAGE: UNKNOWN
     Route: 065
  6. MEMANTINE. [Concomitant]
     Active Substance: MEMANTINE
     Indication: DIZZINESS
     Dosage: DOSAGE: UNKNOWN
     Route: 065
  7. GLIMEHEXAL [Concomitant]
     Indication: TYPE 2 DIABETES MELLITUS
     Route: 065
  8. MEMANTINE. [Concomitant]
     Active Substance: MEMANTINE
     Indication: DEMENTIA
     Dosage: DOSAGE: UNKNOWN
     Route: 065
  9. LUCETAM [Concomitant]
     Indication: DIZZINESS
     Dosage: DOSAGE: UNKNOWN
     Route: 065
  10. XARELTO [Suspect]
     Active Substance: RIVAROXABAN
     Indication: PULMONARY EMBOLISM
     Route: 048

REACTIONS (5)
  - Dyspnoea [Not Recovered/Not Resolved]
  - Product prescribing issue [Unknown]
  - Haematuria [Recovered/Resolved]
  - Asthenia [Not Recovered/Not Resolved]
  - Dizziness [Not Recovered/Not Resolved]
